FAERS Safety Report 9639977 (Version 1)
Quarter: 2013Q4

REPORT INFORMATION
  Report Type: Spontaneous
  Country: US (occurrence: None)
  Receive Date: 20131021
  Receipt Date: 20131021
  Transmission Date: 20140711
  Serious: No
  Sender: FDA-Public Use
  Company Number: None

PATIENT
  Age: 73 Year
  Sex: Female
  Weight: 63.5 kg

DRUGS (6)
  1. PREPOPIK [Suspect]
     Indication: COLONOSCOPY
     Dosage: 2 PACKETS OF POWDER 2X- 10 AM AND 3 PM. DISSOLVED IN WATER, THEN DRANK WITH MORE WATER FOLLOWING IT.
     Dates: start: 20130920, end: 20130910
  2. GLUCOSAMINE-CHONDRIOTIN-MSM [Concomitant]
  3. CENTRUM SILVER [Concomitant]
  4. I-CAPS [Concomitant]
  5. VIT.C [Concomitant]
  6. D3 [Concomitant]

REACTIONS (5)
  - Headache [None]
  - Blood pressure increased [None]
  - Dizziness [None]
  - Vomiting [None]
  - Abdominal pain upper [None]
